FAERS Safety Report 8078026-9 (Version None)
Quarter: 2012Q1

REPORT INFORMATION
  Report Type: 
  Country: None (occurrence: None)
  Receive Date: 20120127
  Receipt Date: 20110106
  Transmission Date: 20120608
  Serious: No
  Sender: FDA-Public Use
  Company Number: US-ABBOTT-11P-163-0695851-00

PATIENT
  Sex: Female
  Weight: 99.88 kg

DRUGS (3)
  1. HUMIRA [Suspect]
     Indication: CROHN'S DISEASE
     Dates: start: 20060101
  2. HUMIRA [Suspect]
     Indication: PSORIASIS
  3. HUMIRA [Suspect]
     Indication: FISTULA

REACTIONS (5)
  - CELLULITIS [None]
  - SINUSITIS [None]
  - LOCALISED INFECTION [None]
  - PYELONEPHRITIS [None]
  - CYSTITIS [None]
